FAERS Safety Report 7644012-3 (Version None)
Quarter: 2011Q3

REPORT INFORMATION
  Report Type: 
  Country: None (occurrence: None)
  Receive Date: 20110729
  Receipt Date: 20110726
  Transmission Date: 20111222
  Serious: Yes (Hospitalization)
  Sender: FDA-Public Use
  Company Number: FR-PFIZER INC-2011169663

PATIENT
  Age: 72 Year
  Sex: Male

DRUGS (4)
  1. PIPERACILLIN AND TAZOBACTAM [Suspect]
     Indication: GANGRENE
     Dosage: 4 G, 3X/DAY
     Route: 040
     Dates: start: 20110310, end: 20110318
  2. CIPROFLOXACIN [Suspect]
     Indication: GANGRENE
     Dosage: 500 MG, 1X/DAY
     Route: 048
     Dates: start: 20110310, end: 20110317
  3. TRAMADOL HCL [Suspect]
     Indication: PAIN
     Dosage: 100 MG, 2X/DAY
     Route: 048
     Dates: start: 20110304, end: 20110317
  4. MORPHINE SULFATE [Suspect]
     Indication: PAIN
     Dosage: 10 MG, 3X/DAY
     Route: 048
     Dates: start: 20110304, end: 20110317

REACTIONS (1)
  - CONFUSIONAL STATE [None]
